FAERS Safety Report 5819007-2 (Version None)
Quarter: 2008Q3

REPORT INFORMATION
  Report Type: 
  Country: None (occurrence: None)
  Receive Date: 20080721
  Receipt Date: 20080721
  Transmission Date: 20090109
  Serious: Yes (Life-Threatening, Other)
  Sender: FDA-Public Use
  Company Number: None

PATIENT
  Age: 54 Year
  Sex: Female
  Weight: 54.4316 kg

DRUGS (2)
  1. ALDARA [Suspect]
     Indication: NASAL DISORDER
     Dosage: 2X A DAY 5 ON 2 OFF 5 ON 2 OFF
     Dates: start: 20071205, end: 20071224
  2. ALDARA [Suspect]
     Indication: SQUAMOUS CELL CARCINOMA OF SKIN
     Dosage: 2X A DAY 5 ON 2 OFF 5 ON 2 OFF
     Dates: start: 20071205, end: 20071224

REACTIONS (14)
  - BURNING SENSATION [None]
  - CUTANEOUS LUPUS ERYTHEMATOSUS [None]
  - DEHYDRATION [None]
  - DRUG INEFFECTIVE [None]
  - ERYTHEMA [None]
  - FATIGUE [None]
  - HEADACHE [None]
  - IMPAIRED WORK ABILITY [None]
  - INFLUENZA LIKE ILLNESS [None]
  - MYALGIA [None]
  - NAUSEA [None]
  - SKIN EXFOLIATION [None]
  - TREMOR [None]
  - VISION BLURRED [None]
